FAERS Safety Report 15954586 (Version 1)
Quarter: 2019Q1

REPORT INFORMATION
  Report Type: Spontaneous
  Country: JP (occurrence: JP)
  Receive Date: 20190213
  Receipt Date: 20190213
  Transmission Date: 20190417
  Serious: Yes (Hospitalization)
  Sender: FDA-Public Use
  Company Number: JP-TEVA-2019-JP-1010453

PATIENT
  Age: 64 Year
  Sex: Female
  Weight: 46 kg

DRUGS (3)
  1. ACETYLSALICYLIC ACID [Suspect]
     Active Substance: ASPIRIN
     Indication: ANTIPLATELET THERAPY
     Route: 065
  2. OLMESARTAN-MEDOXOMIL [Concomitant]
     Active Substance: OLMESARTAN MEDOXOMIL
     Indication: HYPERTENSION
     Route: 065
  3. CARVEDILOL. [Concomitant]
     Active Substance: CARVEDILOL
     Indication: HYPERTENSION
     Route: 065

REACTIONS (10)
  - Sensory disturbance [Recovering/Resolving]
  - Monoplegia [Recovering/Resolving]
  - Spinal epidural haematoma [Recovered/Resolved]
  - Anorectal disorder [Recovering/Resolving]
  - Dyschezia [Recovering/Resolving]
  - Hypokinesia [Recovering/Resolving]
  - Bladder dysfunction [Recovering/Resolving]
  - Hypoaesthesia [Recovering/Resolving]
  - Spinal subdural haematoma [Recovered/Resolved]
  - Back pain [Recovering/Resolving]
